FAERS Safety Report 9579560 (Version 1)
Quarter: 2013Q4

REPORT INFORMATION
  Report Type: Spontaneous
  Country: US (occurrence: US)
  Receive Date: 20131001
  Receipt Date: 20131001
  Transmission Date: 20140711
  Serious: No
  Sender: FDA-Public Use
  Company Number: US-AMGEN-USASP2013038695

PATIENT
  Age: 65 Year
  Sex: Male
  Weight: 95.24 kg

DRUGS (6)
  1. PROCRIT [Suspect]
     Indication: HAEMOGLOBIN DECREASED
     Dosage: 36000 UNIT, QWK
     Route: 058
     Dates: start: 20130513
  2. RIBAVIRIN [Concomitant]
     Indication: HEPATITIS C
     Dosage: 600 MG, QD
     Route: 048
     Dates: start: 20130405
  3. INCIVEK [Concomitant]
     Indication: HEPATITIS C
     Dosage: 750 MG, TID
     Route: 048
     Dates: start: 20130405
  4. PEGASYS [Concomitant]
     Indication: HEPATITIS C
     Dosage: 180 MUG, QWK
     Dates: start: 20130405
  5. LOSARTAN [Concomitant]
     Indication: HYPERTENSION
     Dosage: 25 MG, QD
     Route: 048
     Dates: start: 2012
  6. METOPROLOL [Concomitant]
     Indication: HYPERTENSION
     Dosage: 25 MG, BID
     Route: 048
     Dates: start: 2012

REACTIONS (1)
  - Wrong technique in drug usage process [Recovered/Resolved]
